FAERS Safety Report 6314434-1 (Version None)
Quarter: 2009Q3

REPORT INFORMATION
  Report Type: 
  Country: None (occurrence: None)
  Receive Date: 20090819
  Receipt Date: 20090811
  Transmission Date: 20100115
  Serious: Yes (Hospitalization)
  Sender: FDA-Public Use
  Company Number: NL-ROCHE-525053

PATIENT
  Weight: 48.5 kg

DRUGS (13)
  1. CAPECITABINE [Suspect]
     Indication: GASTRIC CANCER
     Dosage: TWO WEEKS TREATMENT FOLLOWED BY ONE WEEK REST. AS PER PROTOCOL., LAST DOSE PRIOR TO SAE: 13-11-2007
     Route: 048
     Dates: start: 20070925
  2. EPIRUBICIN [Suspect]
     Indication: GASTRIC CANCER
     Dosage: GIVEN ON DAY ONE AS PER PROTOCOL, LAST DOSE PRIOR TO SAE: 13-11-2007
     Route: 042
     Dates: start: 20070925
  3. CISPLATIN [Suspect]
     Indication: GASTRIC CANCER
     Dosage: GIVEN ON DAY ONE AS PER PROTOCOL, LAST DOSE PRIOR TO SAE: 13-11-2007
     Route: 042
     Dates: start: 20070925
  4. PANTOZOL [Concomitant]
     Route: 048
  5. ACETAMINOPHEN [Concomitant]
  6. METOCLOPRAMIDE [Concomitant]
  7. LACTULOSE [Concomitant]
     Dosage: REPORTED AS 2DD.
  8. SLOW-K [Concomitant]
     Dosage: REPORTED AS 3DD.
  9. MAALOX [Concomitant]
     Dosage: REPORTED AS 3DD.
  10. DEXAMETHASONE TAB [Suspect]
     Indication: DRUG USE FOR UNKNOWN INDICATION
     Route: 042
     Dates: start: 20071113, end: 20071113
  11. DEXAMETHASONE TAB [Suspect]
     Route: 048
     Dates: start: 20071114, end: 20071116
  12. APREPITANT [Concomitant]
     Dosage: DOSE RPTD AS 125 MGR2 DG/ 80 MG
     Route: 048
     Dates: start: 20071113, end: 20071115
  13. GRANISETRON HCL [Concomitant]
     Route: 042
     Dates: start: 20071113, end: 20071113

REACTIONS (4)
  - ASTHENIA [None]
  - DIARRHOEA [None]
  - HYPERGLYCAEMIA [None]
  - PYREXIA [None]
